FAERS Safety Report 7486450-8 (Version None)
Quarter: 2011Q2

REPORT INFORMATION
  Report Type: 
  Country: None (occurrence: None)
  Receive Date: 20110517
  Receipt Date: 20110512
  Transmission Date: 20111010
  Serious: Yes (Hospitalization, Other)
  Sender: FDA-Public Use
  Company Number: ES-PFIZER INC-2011102834

PATIENT
  Age: 76 Year
  Sex: Female

DRUGS (6)
  1. ESIDRIX [Interacting]
     Indication: HYPERTENSION
     Dosage: 25 MG, UNK
     Route: 048
     Dates: start: 20100722, end: 20110212
  2. AMLODIPINE [Concomitant]
     Indication: HYPERTENSION
     Dosage: UNK
     Route: 048
     Dates: start: 20090510
  3. LOSARTAN [Concomitant]
     Indication: HYPERTENSION
     Dosage: UNK
     Route: 048
     Dates: start: 20090526
  4. VENLAFAXINE HCL [Suspect]
     Dosage: 75 MG, UNK
     Route: 048
     Dates: start: 20090510
  5. OXCARBAZEPINE [Interacting]
     Dosage: 300 MG, 2X/DAY
     Route: 048
     Dates: start: 20091201, end: 20110214
  6. OMEPRAZOLE [Concomitant]
     Dosage: UNK
     Route: 048
     Dates: start: 20100902

REACTIONS (4)
  - DRUG INTERACTION [None]
  - DYSPNOEA [None]
  - OEDEMA PERIPHERAL [None]
  - HYPONATRAEMIA [None]
